FAERS Safety Report 7352948-6 (Version None)
Quarter: 2011Q1

REPORT INFORMATION
  Report Type: 
  Country: None (occurrence: None)
  Receive Date: 20110315
  Receipt Date: 20110310
  Transmission Date: 20110831
  Serious: Yes (Death, Hospitalization, Other)
  Sender: FDA-Public Use
  Company Number: BG-ROXANE LABORATORIES, INC.-2011-RO-00296RO

PATIENT
  Age: 62 Year
  Sex: Male

DRUGS (17)
  1. MORPHINE [Suspect]
     Indication: PAIN
     Route: 058
  2. MORPHINE SULFATE [Suspect]
     Dosage: 360 MG
     Route: 048
  3. CARBAMAZEPINE [Suspect]
     Indication: EPILEPSY
     Dosage: 600 MG
  4. MORPHINE [Suspect]
     Route: 048
  5. CALYSPSOL [Suspect]
     Indication: PAIN
     Dosage: 50 MG
     Route: 048
  6. LACTULOSE [Suspect]
  7. METRONIDAZOLE [Suspect]
     Route: 042
  8. NAPROXEN [Suspect]
     Indication: PAIN
  9. SENNA LAXATIVE [Suspect]
  10. DIPYRONE INJ [Suspect]
     Dosage: 2000 MG
  11. CARBAMAZEPINE [Suspect]
     Dosage: 800 MG
  12. OXYCONTIN [Suspect]
     Indication: PAIN
     Dosage: 160 MG
  13. BISALAX [Suspect]
     Route: 054
  14. MORPHINE SULFATE [Suspect]
     Indication: PAIN
     Dosage: 120 MG
     Route: 048
  15. METOCLOPRAMIDE HCL [Suspect]
  16. DIPYRONE INJ [Suspect]
     Dosage: 1500 MG
  17. AMITRIPTLINE HYDROCHLORIDE TAB [Suspect]
     Indication: PAIN
     Dosage: 25 MG

REACTIONS (4)
  - CONSTIPATION [None]
  - ALLODYNIA [None]
  - DEATH [None]
  - HYPERAESTHESIA [None]
